FAERS Safety Report 9103193 (Version 5)
Quarter: 2014Q1

REPORT INFORMATION
  Report Type: Report from Study
  Country: JP (occurrence: JP)
  Receive Date: 20130219
  Receipt Date: 20140321
  Transmission Date: 20141002
  Serious: Yes (Hospitalization)
  Sender: FDA-Public Use
  Company Number: PHHO2013JP002199

PATIENT
  Age: 78 Year
  Sex: Male
  Weight: 57 kg

DRUGS (6)
  1. AMN107 [Suspect]
     Indication: CHRONIC MYELOID LEUKAEMIA
     Dosage: 600 MG, DAILY
     Route: 048
     Dates: start: 20101113
  2. NOVORAPID MIX [Concomitant]
  3. LEVEMIR [Concomitant]
  4. TAKEPRON [Concomitant]
     Route: 048
  5. URSODEOXYCHOLIC ACID [Concomitant]
     Route: 048
  6. MAGLAX [Concomitant]

REACTIONS (1)
  - Lacunar infarction [Recovering/Resolving]
